FAERS Safety Report 9399925 (Version 1)
Quarter: 2013Q3

REPORT INFORMATION
  Report Type: Spontaneous
  Country: GB (occurrence: GB)
  Receive Date: 20130715
  Receipt Date: 20130715
  Transmission Date: 20140515
  Serious: Yes (Death, Hospitalization)
  Sender: FDA-Public Use
  Company Number: GB-BAYER-2013-082117

PATIENT
  Age: 84 Year
  Sex: Female

DRUGS (4)
  1. CIPROFLOXACIN [Suspect]
     Indication: CELLULITIS
     Dosage: 500 MG, BID
     Route: 048
  2. CIPROFLOXACIN [Suspect]
     Indication: LOCALISED INFECTION
  3. ENALAPRIL [Concomitant]
  4. FUROSEMIDE [Concomitant]

REACTIONS (7)
  - Clostridium difficile colitis [Fatal]
  - Intestinal ischaemia [Fatal]
  - Megacolon [Fatal]
  - Diarrhoea [Fatal]
  - Hypotension [Fatal]
  - Hypophagia [Fatal]
  - Septic shock [Fatal]
